FAERS Safety Report 8759070 (Version 1)
Quarter: 2012Q4

REPORT INFORMATION
  Report Type: 
  Country: CH (occurrence: CH)
  Receive Date: 20120829
  Receipt Date: 20120829
  Transmission Date: 20130627
  Serious: Yes (Other)
  Sender: FDA-Public Use
  Company Number: CH-PAR PHARMACEUTICAL, INC-2012SCPR004576

PATIENT

DRUGS (1)
  1. BUPROPION HCL XL [Suspect]
     Indication: MAJOR DEPRESSION
     Dosage: 150 mg, qd
     Route: 065

REACTIONS (6)
  - Hallucination, gustatory [Recovered/Resolved]
  - Hallucination, olfactory [Recovered/Resolved]
  - Hyperacusis [Recovered/Resolved]
  - Tachycardia [Recovered/Resolved]
  - Anxiety [Recovered/Resolved]
  - Headache [Recovered/Resolved]
